FAERS Safety Report 11999891 (Version 1)
Quarter: 2016Q1

REPORT INFORMATION
  Report Type: Spontaneous
  Country: US (occurrence: US)
  Receive Date: 20160204
  Receipt Date: 20160204
  Transmission Date: 20160526
  Serious: Yes (Hospitalization)
  Sender: FDA-Public Use
  Company Number: US-ACTAVIS-2016-01582

PATIENT
  Age: 5 Year
  Sex: Male

DRUGS (1)
  1. GUANFACINE (AELLC) [Suspect]
     Active Substance: GUANFACINE
     Indication: ATTENTION DEFICIT/HYPERACTIVITY DISORDER
     Dosage: 2 MG, DAILY
     Route: 048

REACTIONS (1)
  - Psychotic disorder [Recovered/Resolved]
